FAERS Safety Report 19056030 (Version 2)
Quarter: 2021Q2

REPORT INFORMATION
  Report Type: Spontaneous
  Country: BE (occurrence: BE)
  Receive Date: 20210324
  Receipt Date: 20210413
  Transmission Date: 20210717
  Serious: Yes (Death, Other)
  Sender: FDA-Public Use
  Company Number: BE-DSJP-DSE-2021-108469

PATIENT
  Age: 93 Year
  Sex: Male
  Weight: 65 kg

DRUGS (5)
  1. LIXIANA [Suspect]
     Active Substance: EDOXABAN TOSYLATE
     Indication: ATRIAL FIBRILLATION
     Dosage: 60 MG, QD
     Route: 048
     Dates: start: 201906, end: 20210224
  2. BISOPROLOL [Concomitant]
     Active Substance: BISOPROLOL
     Indication: ATRIAL FIBRILLATION
     Dosage: UNK
     Route: 048
     Dates: start: 2020
  3. LIXIANA [Suspect]
     Active Substance: EDOXABAN TOSYLATE
     Dosage: 30 MG, QD
     Route: 048
     Dates: start: 2021
  4. DONEPEZIL. [Concomitant]
     Active Substance: DONEPEZIL
     Indication: DEMENTIA
     Dosage: UNK
     Route: 048
     Dates: start: 2019
  5. AMLOR [Concomitant]
     Active Substance: AMLODIPINE BESYLATE
     Indication: HYPERTENSION
     Dosage: UNK
     Route: 048
     Dates: start: 2016

REACTIONS (4)
  - Haematuria [Recovered/Resolved]
  - Urinary tract infection [Unknown]
  - Incorrect dose administered [Unknown]
  - Cerebrovascular accident [Fatal]

NARRATIVE: CASE EVENT DATE: 2021
